FAERS Safety Report 5148766-X (Version None)
Quarter: 2006Q4

REPORT INFORMATION
  Report Type: 
  Country: None (occurrence: None)
  Receive Date: 20061113
  Receipt Date: 20060811
  Transmission Date: 20070319
  Serious: Yes (Hospitalization, Other)
  Sender: FDA-Public Use
  Company Number: PHNU2006DE02777

PATIENT
  Age: 85 Year
  Sex: Female
  Weight: 74.5 kg

DRUGS (17)
  1. LACTULOSE [Concomitant]
     Dosage: 1 DF, BID
     Route: 048
  2. PANTOZOL [Concomitant]
     Dosage: 20 MG, QD
     Route: 048
  3. SIMVASTATIN [Concomitant]
     Dosage: 20 MG, QD
     Route: 048
  4. NPH INSULIN [Concomitant]
     Route: 065
  5. METOHEXAL [Concomitant]
     Dosage: 0.5 DF, BID
     Route: 048
  6. TRAMADOLOR [Concomitant]
     Dosage: 150 MG, QD
     Route: 048
  7. FERRLECIT [Concomitant]
     Dosage: 1 DF, QW2
     Route: 042
  8. CYANOCOBALAMIN [Concomitant]
     Route: 065
     Dates: end: 20060814
  9. ASCORBIC ACID [Concomitant]
     Dosage: 0.2 DF, QW3
     Route: 042
  10. CINACALCET [Concomitant]
     Dosage: 30 MG, QW3
     Route: 048
  11. NEORECORMON [Concomitant]
     Dosage: 5000 IU, QW
     Route: 058
  12. CALCITRIOL [Concomitant]
     Dosage: 1 DF, UNK
     Dates: end: 20061011
  13. DESFERAL [Suspect]
     Indication: BLOOD ALUMINIUM INCREASED
     Dosage: 0.5 G, QW
     Route: 065
     Dates: start: 20060629, end: 20060807
  14. SEROQUEL [Concomitant]
     Dosage: 200 MG/DAY
     Route: 048
  15. ADUMBRAN [Concomitant]
     Dosage: 10 MG/DAY
     Route: 048
  16. RENAGEL [Concomitant]
     Dosage: 640 MG/DAY
     Route: 048
     Dates: start: 20060626
  17. AXURA [Concomitant]
     Dosage: 10 MG, QD
     Route: 048

REACTIONS (1)
  - GAMMA-GLUTAMYLTRANSFERASE INCREASED [None]
